FAERS Safety Report 17467017 (Version 1)
Quarter: 2020Q1

REPORT INFORMATION
  Report Type: Spontaneous
  Country: PL (occurrence: PL)
  Receive Date: 20200227
  Receipt Date: 20200227
  Transmission Date: 20200409
  Serious: Yes (Hospitalization)
  Sender: FDA-Public Use
  Company Number: PL-MYLANLABS-2020M1019792

PATIENT
  Age: 8 Decade
  Sex: Female

DRUGS (8)
  1. CLADRIBINE. [Suspect]
     Active Substance: CLADRIBINE
     Indication: ACUTE MYELOID LEUKAEMIA
     Dosage: INDUCTION (DAC REGIMEN)
     Route: 065
  2. DAUNORUBICINE [Suspect]
     Active Substance: DAUNORUBICIN
     Indication: ACUTE MYELOID LEUKAEMIA
     Dosage: INDUCTION (DAC REGIMEN)
     Route: 065
  3. POSACONAZOLE [Concomitant]
     Active Substance: POSACONAZOLE
     Indication: PROPHYLAXIS
     Dosage: UNK
     Route: 065
  4. CYTARABINE. [Suspect]
     Active Substance: CYTARABINE
     Indication: ACUTE MYELOID LEUKAEMIA
     Dosage: INDUCTION (DAC REGIMEN)
     Route: 065
  5. MITOXANTRON                        /00661301/ [Suspect]
     Active Substance: MITOXANTRONE HYDROCHLORIDE
     Indication: ACUTE MYELOID LEUKAEMIA
     Dosage: REINDUCTION (CLAG-M REGIMEN)
     Route: 065
  6. CLADRIBINE. [Suspect]
     Active Substance: CLADRIBINE
     Dosage: RE-INDUCTION (CLAG-M REGIMEN)
     Route: 065
  7. CYTARABINE. [Suspect]
     Active Substance: CYTARABINE
     Dosage: RE-INDUCTION (CLAG-M REGIMEN)
     Route: 065
  8. METHYLPREDNISOLONE. [Suspect]
     Active Substance: METHYLPREDNISOLONE
     Indication: IMMUNOSUPPRESSANT DRUG THERAPY
     Dosage: LOW-DOSE
     Route: 048

REACTIONS (4)
  - Pulmonary mucormycosis [Recovering/Resolving]
  - Candida infection [Recovering/Resolving]
  - Loss of consciousness [Unknown]
  - Pleural effusion [Recovering/Resolving]
